FAERS Safety Report 4384656-8 (Version None)
Quarter: 2004Q2

REPORT INFORMATION
  Report Type: 
  Country: None (occurrence: None)
  Receive Date: 20040621
  Receipt Date: 20040601
  Transmission Date: 20050107
  Serious: Yes (Life-Threatening)
  Sender: FDA-Public Use
  Company Number: 207214

PATIENT
  Age: 54 Year
  Sex: Female
  Weight: 86 kg

DRUGS (6)
  1. HERCEPTIN [Suspect]
     Indication: BREAST CANCER METASTATIC
     Dosage: 688 MG, INTRAVENOUS
     Route: 042
     Dates: start: 20040525, end: 20040525
  2. PROPRANOLOL [Concomitant]
  3. PERINDOPRIL (PERINDOPRIL) [Concomitant]
  4. AMLODIPINE (AMLODIPINE BESYLATE) [Concomitant]
  5. CLOPAMIDE (CLOPAMIDE) [Concomitant]
  6. TAMOXIFEN CITRATE [Concomitant]

REACTIONS (1)
  - THROMBOCYTOPENIA [None]
